FAERS Safety Report 13190286 (Version 2)
Quarter: 2017Q1

REPORT INFORMATION
  Report Type: Spontaneous
  Country: JP (occurrence: JP)
  Receive Date: 20170206
  Receipt Date: 20170302
  Transmission Date: 20170428
  Serious: Yes (Hospitalization)
  Sender: FDA-Public Use
  Company Number: JP-SA-2017SA017323

PATIENT
  Age: 62 Year
  Sex: Male

DRUGS (13)
  1. TIPIRACIL HYDROCHLORIDE/TRIFLURIDINE [Concomitant]
     Route: 065
     Dates: start: 201603
  2. VECTIBIX [Concomitant]
     Active Substance: PANITUMUMAB
     Route: 065
     Dates: start: 201602, end: 201602
  3. OLDAMIN [Concomitant]
     Active Substance: ETHANOLAMINE OLEATE
     Route: 065
     Dates: start: 201605, end: 201605
  4. ELPLAT [Suspect]
     Active Substance: OXALIPLATIN
     Indication: RECTAL CANCER
     Route: 041
     Dates: start: 201502, end: 201502
  5. AVASTIN [Concomitant]
     Active Substance: BEVACIZUMAB
     Route: 065
     Dates: start: 201504, end: 201504
  6. AVASTIN [Concomitant]
     Active Substance: BEVACIZUMAB
     Route: 065
     Dates: start: 201506, end: 201506
  7. AVASTIN [Concomitant]
     Active Substance: BEVACIZUMAB
     Route: 065
     Dates: start: 201403
  8. ELPLAT [Suspect]
     Active Substance: OXALIPLATIN
     Indication: RECTAL CANCER
     Route: 041
     Dates: start: 201403, end: 201403
  9. XELODA [Concomitant]
     Active Substance: CAPECITABINE
     Route: 065
     Dates: start: 201403, end: 201502
  10. VECTIBIX [Concomitant]
     Active Substance: PANITUMUMAB
     Route: 065
     Dates: start: 201507, end: 201507
  11. IOPAMIDOL [Concomitant]
     Active Substance: IOPAMIDOL
     Route: 065
     Dates: start: 201605, end: 201605
  12. CAMPTO [Suspect]
     Active Substance: IRINOTECAN
     Indication: RECTAL CANCER
     Route: 041
     Dates: start: 201506, end: 201506
  13. CAMPTO [Suspect]
     Active Substance: IRINOTECAN
     Indication: RECTAL CANCER
     Route: 041
     Dates: start: 201504, end: 201504

REACTIONS (1)
  - Stomal varices [Recovered/Resolved]

NARRATIVE: CASE EVENT DATE: 201605
